FAERS Safety Report 9745264 (Version 2)
Quarter: 2013Q4

REPORT INFORMATION
  Report Type: Spontaneous
  Country: CA (occurrence: CA)
  Receive Date: 20131211
  Receipt Date: 20131218
  Transmission Date: 20140711
  Serious: Yes (Hospitalization)
  Sender: FDA-Public Use
  Company Number: CA-BEH-2013039377

PATIENT
  Age: 73 Year
  Sex: Male

DRUGS (24)
  1. PRIVIGEN [Suspect]
     Dosage: 20 GM;200 ML
     Route: 042
     Dates: start: 20131115, end: 20131116
  2. PRIVIGEN [Suspect]
     Route: 042
     Dates: start: 20131120
  3. PRIVIGEN [Suspect]
     Route: 042
     Dates: start: 20131020
  4. PRIVIGEN [Suspect]
     Route: 042
     Dates: start: 20131019
  5. PRIVIGEN [Suspect]
     Route: 042
     Dates: start: 20131013
  6. NORVASC [Concomitant]
     Route: 048
  7. CALCITROL [Concomitant]
     Route: 048
  8. CALCIUM CARBONATE [Concomitant]
     Route: 048
  9. COTRIMOXAZOLE [Concomitant]
     Route: 048
  10. ENOXAPARIN [Concomitant]
     Route: 058
  11. ETHAMBUTOL [Concomitant]
     Dosage: IN PM
     Route: 048
  12. ISONIAZIDE [Concomitant]
     Dosage: IN AM;STRENGTH=300
     Route: 048
  13. MG GLUCCHEOT [Concomitant]
     Route: 048
  14. MIRTAZAPINE [Concomitant]
     Dosage: HS
     Route: 048
  15. MULTIVITES [Concomitant]
     Route: 048
  16. PANTOPRAZOLE [Concomitant]
     Dosage: IN AM
     Route: 048
  17. PYRAZINAMIDE [Concomitant]
     Dosage: IN AM
     Route: 048
  18. PYRIDOXINE [Concomitant]
     Dosage: IN AM
     Route: 048
  19. RIFAMPIN [Concomitant]
     Dosage: AC SUPPER
     Route: 048
  20. SODIUM BICARBONATE [Concomitant]
     Route: 048
  21. TAMSULOSIN [Concomitant]
     Dosage: 2 CAPS PC BREAKFAST
     Route: 048
  22. VALACICLOVIR [Concomitant]
     Route: 048
  23. GRAVOL [Concomitant]
     Route: 048
     Dates: start: 20131116
  24. LOPERAMIDE [Concomitant]
     Route: 048
     Dates: start: 20131116

REACTIONS (6)
  - Disseminated tuberculosis [Unknown]
  - Hypersensitivity [Recovered/Resolved]
  - Tachycardia [Recovered/Resolved]
  - Chills [Recovered/Resolved]
  - Pyrexia [Unknown]
  - Neutropenia [Unknown]
